FAERS Safety Report 7185676-0 (Version None)
Quarter: 2010Q4

REPORT INFORMATION
  Report Type: 
  Country: None (occurrence: None)
  Receive Date: 20101222
  Receipt Date: 20100608
  Transmission Date: 20110411
  Serious: No
  Sender: FDA-Public Use
  Company Number: US-AMGEN-KDL415626

PATIENT

DRUGS (2)
  1. ENBREL [Suspect]
     Indication: PSORIATIC ARTHROPATHY
     Dosage: 50 MG, 2 TIMES/WK
     Route: 058
     Dates: start: 20090701
  2. ENBREL [Suspect]
     Indication: PSORIASIS

REACTIONS (10)
  - ALLERGY TO CHEMICALS [None]
  - BLISTER [None]
  - CLAVICLE FRACTURE [None]
  - LOCALISED INFECTION [None]
  - PSORIASIS [None]
  - PURULENT DISCHARGE [None]
  - RASH [None]
  - RASH PRURITIC [None]
  - TOOTH DISORDER [None]
  - VIRAL INFECTION [None]
